FAERS Safety Report 19609937 (Version 25)
Quarter: 2022Q2

REPORT INFORMATION
  Report Type: Report from Study
  Country: CN (occurrence: None)
  Receive Date: 20210726
  Receipt Date: 20220512
  Transmission Date: 20220721
  Serious: Yes (Hospitalization)
  Sender: FDA-Public Use
  Company Number: CN-ROCHE-2861078

PATIENT
  Age: 57 Year
  Sex: Male
  Weight: 45 kg

DRUGS (77)
  1. TIRAGOLUMAB [Suspect]
     Active Substance: TIRAGOLUMAB
     Indication: Oesophageal squamous cell carcinoma
     Dosage: 600 MG/10 ML?DATE OF MOST RECENT DOSE OF BLINDED STUDY DRUG PRIOR TO SAE ONSET: 29/JUN/2021 AND 22/J
     Route: 042
     Dates: start: 20210622
  2. ATEZOLIZUMAB [Suspect]
     Active Substance: ATEZOLIZUMAB
     Indication: Oesophageal squamous cell carcinoma
     Dosage: ON 22/JUN/2021, RECEIVED MOST RECENT DOSE PRIOR TO SAE ONSET.
     Route: 041
     Dates: start: 20210622
  3. CISPLATIN [Suspect]
     Active Substance: CISPLATIN
     Indication: Oesophageal squamous cell carcinoma
     Dosage: 60-80 MG/M^2?ON 22/JUN/2021, THE PATIENT RECEIVED THE MOST RECENT DOSE (84 MG) OF TIRAGOLUMAB PRIOR
     Route: 042
     Dates: start: 20210622
  4. PACLITAXEL [Suspect]
     Active Substance: PACLITAXEL
     Indication: Oesophageal squamous cell carcinoma
     Dosage: ON DAY 1 OF EACH 21-DAY CYCLE?ON THE SAME DATE, HE RECEIVED THE MOST RECENT DOSE(246 MG) OF PACLITAX
     Route: 042
     Dates: start: 20210622
  5. GLYCERIN\LECITHIN\MEDIUM-CHAIN TRIGLYCERIDES\SOYBEAN OIL [Concomitant]
     Active Substance: GLYCERIN\LECITHIN\MEDIUM-CHAIN TRIGLYCERIDES\SOYBEAN OIL
     Indication: Nutritional supplementation
     Dates: start: 20210617, end: 20210622
  6. GLYCERIN\LECITHIN\MEDIUM-CHAIN TRIGLYCERIDES\SOYBEAN OIL [Concomitant]
     Active Substance: GLYCERIN\LECITHIN\MEDIUM-CHAIN TRIGLYCERIDES\SOYBEAN OIL
     Dates: start: 20210723, end: 20210727
  7. DEXTROSE [Concomitant]
     Active Substance: DEXTROSE
     Indication: Nutritional supplementation
     Dates: start: 20210617, end: 20210622
  8. DEXTROSE [Concomitant]
     Active Substance: DEXTROSE
     Dates: start: 20210723, end: 20210727
  9. DEXTROSE [Concomitant]
     Active Substance: DEXTROSE
     Dates: start: 20210629, end: 20210702
  10. DEXTROSE [Concomitant]
     Active Substance: DEXTROSE
     Dates: start: 20210620, end: 20210701
  11. DEXTROSE [Concomitant]
     Active Substance: DEXTROSE
     Route: 050
     Dates: start: 20210629, end: 20210701
  12. DEXTROSE [Concomitant]
     Active Substance: DEXTROSE
     Route: 048
     Dates: start: 20210702, end: 20210702
  13. TROPISETRON MESYLATE [Concomitant]
     Dates: start: 20210622, end: 20210623
  14. TROPISETRON MESYLATE [Concomitant]
     Dates: start: 20210726, end: 20210727
  15. TROPISETRON MESYLATE [Concomitant]
     Route: 050
     Dates: start: 20210825, end: 20210825
  16. APREPITANT [Concomitant]
     Active Substance: APREPITANT
     Dates: start: 20210622, end: 20210623
  17. APREPITANT [Concomitant]
     Active Substance: APREPITANT
     Dates: start: 20210726, end: 20210727
  18. APREPITANT [Concomitant]
     Active Substance: APREPITANT
     Route: 048
     Dates: start: 20210825, end: 20210826
  19. FUROSEMIDE [Concomitant]
     Active Substance: FUROSEMIDE
     Indication: Polyuria
     Dates: start: 20210616, end: 20210616
  20. FUROSEMIDE [Concomitant]
     Active Substance: FUROSEMIDE
     Dates: start: 20210622, end: 20210622
  21. FUROSEMIDE [Concomitant]
     Active Substance: FUROSEMIDE
     Dates: start: 20210726, end: 20210727
  22. FUROSEMIDE [Concomitant]
     Active Substance: FUROSEMIDE
     Dates: start: 20210701
  23. DEXAMETHASONE ACETATE [Concomitant]
     Active Substance: DEXAMETHASONE ACETATE
     Route: 048
     Dates: start: 20210621, end: 20210622
  24. DEXAMETHASONE ACETATE [Concomitant]
     Active Substance: DEXAMETHASONE ACETATE
     Route: 048
     Dates: start: 20210725, end: 20210726
  25. DEXAMETHASONE ACETATE [Concomitant]
     Active Substance: DEXAMETHASONE ACETATE
     Route: 048
     Dates: start: 20210824, end: 20210825
  26. DIPHENHYDRAMINE HYDROCHLORIDE [Concomitant]
     Active Substance: DIPHENHYDRAMINE HYDROCHLORIDE
     Dates: start: 20210622, end: 20210622
  27. DIPHENHYDRAMINE HYDROCHLORIDE [Concomitant]
     Active Substance: DIPHENHYDRAMINE HYDROCHLORIDE
     Route: 030
     Dates: start: 20210825, end: 20210825
  28. DIPHENHYDRAMINE HYDROCHLORIDE [Concomitant]
     Active Substance: DIPHENHYDRAMINE HYDROCHLORIDE
     Dates: start: 20210726, end: 20210726
  29. DIPHENHYDRAMINE HYDROCHLORIDE [Concomitant]
     Active Substance: DIPHENHYDRAMINE HYDROCHLORIDE
     Dates: start: 20210825, end: 20210825
  30. CIMETIDINE [Concomitant]
     Active Substance: CIMETIDINE
     Dates: start: 20210723, end: 20210726
  31. CIMETIDINE [Concomitant]
     Active Substance: CIMETIDINE
     Dates: start: 20210616, end: 20210623
  32. CIMETIDINE [Concomitant]
     Active Substance: CIMETIDINE
     Dates: start: 20210630, end: 20210630
  33. CIMETIDINE [Concomitant]
     Active Substance: CIMETIDINE
     Dates: start: 20210630, end: 20210715
  34. CIMETIDINE [Concomitant]
     Active Substance: CIMETIDINE
     Dates: start: 20210823, end: 20210826
  35. CIMETIDINE [Concomitant]
     Active Substance: CIMETIDINE
     Dates: start: 20210916, end: 20210922
  36. CIMETIDINE [Concomitant]
     Active Substance: CIMETIDINE
     Dates: start: 20210916, end: 20210921
  37. VITAMIN B6 [Concomitant]
     Active Substance: PYRIDOXINE HYDROCHLORIDE
     Dates: start: 20210723, end: 20210727
  38. VITAMIN B6 [Concomitant]
     Active Substance: PYRIDOXINE HYDROCHLORIDE
     Dates: start: 20210616, end: 20210622
  39. VITAMIN B6 [Concomitant]
     Active Substance: PYRIDOXINE HYDROCHLORIDE
     Route: 050
     Dates: start: 20210823, end: 20210823
  40. VITAMIN B6 [Concomitant]
     Active Substance: PYRIDOXINE HYDROCHLORIDE
     Route: 050
     Dates: start: 20210823, end: 20210825
  41. VITAMIN B6 [Concomitant]
     Active Substance: PYRIDOXINE HYDROCHLORIDE
     Dates: start: 20210916, end: 20210921
  42. VITAMIN B6 [Concomitant]
     Active Substance: PYRIDOXINE HYDROCHLORIDE
     Dates: start: 20210823, end: 20210825
  43. VITAMIN B6 [Concomitant]
     Active Substance: PYRIDOXINE HYDROCHLORIDE
     Dates: start: 20210916, end: 20210921
  44. SODIUM POTASSIUM MAGNESIUM CALCIUM AND GLUCOSE [Concomitant]
     Dates: start: 20210726, end: 20210726
  45. SODIUM POTASSIUM MAGNESIUM CALCIUM AND GLUCOSE [Concomitant]
     Dates: start: 20210616, end: 20210622
  46. SODIUM POTASSIUM MAGNESIUM CALCIUM AND GLUCOSE [Concomitant]
     Route: 050
     Dates: start: 20210823, end: 20210826
  47. DEXAMETHASONE SODIUM PHOSPHATE [Concomitant]
     Active Substance: DEXAMETHASONE SODIUM PHOSPHATE
     Route: 050
     Dates: start: 20210727, end: 20210727
  48. DEXAMETHASONE SODIUM PHOSPHATE [Concomitant]
     Active Substance: DEXAMETHASONE SODIUM PHOSPHATE
     Route: 042
     Dates: start: 20210802, end: 20210802
  49. SODIUM BICARBONATE [Concomitant]
     Active Substance: SODIUM BICARBONATE
     Dates: start: 20210616, end: 20210622
  50. SODIUM BICARBONATE [Concomitant]
     Active Substance: SODIUM BICARBONATE
     Route: 050
     Dates: start: 20210823, end: 20210823
  51. SODIUM BICARBONATE [Concomitant]
     Active Substance: SODIUM BICARBONATE
     Route: 050
     Dates: start: 20210823, end: 20210826
  52. CEFTAZIDIME [Concomitant]
     Active Substance: CEFTAZIDIME
     Indication: Infection prophylaxis
     Route: 055
     Dates: start: 20210802, end: 20210802
  53. CEFTAZIDIME [Concomitant]
     Active Substance: CEFTAZIDIME
     Route: 050
     Dates: start: 20210629, end: 20210715
  54. CEFTAZIDIME [Concomitant]
     Active Substance: CEFTAZIDIME
     Route: 050
     Dates: start: 20210715
  55. VITAMIN C [Concomitant]
     Active Substance: ASCORBIC ACID
     Dates: start: 20210629, end: 20210629
  56. VITAMIN C [Concomitant]
     Active Substance: ASCORBIC ACID
     Dates: start: 20210630, end: 20210701
  57. POTASSIUM CHLORIDE [Concomitant]
     Active Substance: POTASSIUM CHLORIDE
     Dates: start: 20210629, end: 20210629
  58. POTASSIUM CHLORIDE [Concomitant]
     Active Substance: POTASSIUM CHLORIDE
     Route: 050
     Dates: start: 20210823, end: 20210823
  59. POTASSIUM CHLORIDE [Concomitant]
     Active Substance: POTASSIUM CHLORIDE
     Dates: start: 20210630, end: 20210701
  60. POTASSIUM CHLORIDE [Concomitant]
     Active Substance: POTASSIUM CHLORIDE
     Dates: start: 20210823, end: 20210825
  61. POTASSIUM CHLORIDE [Concomitant]
     Active Substance: POTASSIUM CHLORIDE
     Dates: start: 20210823, end: 20210825
  62. ASPIRIN DL-LYSINE [Concomitant]
     Active Substance: ASPIRIN DL-LYSINE
     Dates: start: 20210829, end: 20210829
  63. ASPIRIN DL-LYSINE [Concomitant]
     Active Substance: ASPIRIN DL-LYSINE
     Dates: start: 20210629, end: 20210629
  64. ALBUMIN HUMAN [Concomitant]
     Active Substance: ALBUMIN HUMAN
     Indication: Hypoproteinaemia
     Dates: start: 20210705, end: 20210706
  65. ALBUMIN HUMAN [Concomitant]
     Active Substance: ALBUMIN HUMAN
     Dates: start: 20210707, end: 20210708
  66. ALBUMIN HUMAN [Concomitant]
     Active Substance: ALBUMIN HUMAN
     Dates: start: 20210713, end: 20210714
  67. FUROSEMIDE [Concomitant]
     Active Substance: FUROSEMIDE
     Indication: Polyuria
     Dates: start: 20210705, end: 20210708
  68. FUROSEMIDE [Concomitant]
     Active Substance: FUROSEMIDE
     Dates: start: 20210713, end: 20210714
  69. FUROSEMIDE [Concomitant]
     Active Substance: FUROSEMIDE
     Route: 042
     Dates: start: 20210726, end: 20210727
  70. TROPISETRON HYDROCHLORIDE [Concomitant]
     Active Substance: TROPISETRON HYDROCHLORIDE
     Dates: start: 20210825, end: 20210826
  71. SODIUM POTASSIUM MAGNESIUM CALCIUM AND GLUCOSE [Concomitant]
     Route: 050
     Dates: start: 20210825, end: 20210825
  72. SODIUM CHLORIDE [Concomitant]
     Active Substance: SODIUM CHLORIDE
     Dates: start: 20210723, end: 20210727
  73. SODIUM CHLORIDE [Concomitant]
     Active Substance: SODIUM CHLORIDE
     Dates: start: 20210616, end: 20211010
  74. ASPIRIN DL-LYSINE [Concomitant]
     Active Substance: ASPIRIN DL-LYSINE
     Dates: start: 20210629, end: 20210629
  75. DOPAMINE HYDROCHLORIDE [Concomitant]
     Active Substance: DOPAMINE HYDROCHLORIDE
     Dates: start: 20210630, end: 20210701
  76. ANTONGDING [Concomitant]
     Dates: start: 20210629, end: 20210629
  77. IBUPROFEN [Concomitant]
     Active Substance: IBUPROFEN
     Dates: start: 20210801, end: 20210801

REACTIONS (3)
  - Malnutrition [Recovered/Resolved]
  - Myelosuppression [Recovered/Resolved]
  - Pleural effusion [Recovered/Resolved with Sequelae]

NARRATIVE: CASE EVENT DATE: 20210629
